FAERS Safety Report 8563922-6 (Version None)
Quarter: 2012Q3

REPORT INFORMATION
  Report Type: 
  Country: None (occurrence: None)
  Receive Date: 20120803
  Receipt Date: 20120724
  Transmission Date: 20120928
  Serious: Yes (Hospitalization)
  Sender: FDA-Public Use
  Company Number: US-BAYER-2012-042048

PATIENT
  Age: 20 Year
  Sex: Female

DRUGS (10)
  1. YASMIN [Suspect]
     Indication: POLYCYSTIC OVARIES
     Dosage: UNK
     Dates: start: 20030201, end: 20031201
  2. ATENOLOL [Concomitant]
     Indication: TACHYCARDIA
  3. METFORMIN HYDROCHLORIDE [Concomitant]
     Indication: POLYCYSTIC OVARIES
  4. SYNTHROID [Concomitant]
     Indication: HYPOTHYROIDISM
  5. MOTRIN [Concomitant]
     Dosage: 800 MG, UNK
     Dates: start: 20031227
  6. YASMIN [Suspect]
     Indication: ACNE
  7. FLUTICASONE PROPIONATE [Concomitant]
     Dosage: UNK
     Dates: start: 20031227
  8. ALBUTEROL [Concomitant]
     Dosage: UNK
     Dates: start: 20031227
  9. METFORMIN HYDROCHLORIDE [Concomitant]
     Indication: TYPE 2 DIABETES MELLITUS
     Dosage: UNK
     Dates: start: 20031227
  10. ATENOLOL [Concomitant]
     Indication: HYPERTENSION

REACTIONS (7)
  - PULMONARY EMBOLISM [None]
  - DEEP VEIN THROMBOSIS [None]
  - ANXIETY [None]
  - PAIN [None]
  - GENERAL PHYSICAL HEALTH DETERIORATION [None]
  - INJURY [None]
  - EMOTIONAL DISTRESS [None]
